FAERS Safety Report 4307096-6 (Version None)
Quarter: 2004Q1

REPORT INFORMATION
  Report Type: 
  Country: None (occurrence: None)
  Receive Date: 20040225
  Receipt Date: 20040205
  Transmission Date: 20041129
  Serious: Yes (Disabling, Other)
  Sender: FDA-Public Use
  Company Number: US_0402100617

PATIENT
  Age: 47 Year
  Sex: Female
  Weight: 86 kg

DRUGS (1)
  1. HUMULIN 70/30 [Suspect]
     Dosage: 40 U/2 DAY
     Dates: start: 19970101

REACTIONS (6)
  - BLINDNESS [None]
  - CATARACT [None]
  - DIALYSIS [None]
  - PHARMACEUTICAL PRODUCT COMPLAINT [None]
  - RENAL FAILURE [None]
  - RETINAL DETACHMENT [None]
